FAERS Safety Report 11572478 (Version 2)
Quarter: 2015Q4

REPORT INFORMATION
  Report Type: Report from Study
  Country: CA (occurrence: CA)
  Receive Date: 20150929
  Receipt Date: 20151009
  Transmission Date: 20160304
  Serious: Yes (Life-Threatening, Hospitalization, Other)
  Sender: FDA-Public Use
  Company Number: CA-GILEAD-2015-0161420

PATIENT
  Age: 63 Year
  Sex: Male

DRUGS (5)
  1. NEVANAC [Concomitant]
     Active Substance: NEPAFENAC
     Indication: EYE DISORDER
     Dosage: UNK
  2. RIBAVIRIN. [Suspect]
     Active Substance: RIBAVIRIN
     Indication: CHRONIC HEPATITIS C
     Dosage: 400 MG, BID
     Route: 048
     Dates: start: 20150904, end: 20150924
  3. LEDIPASVIR/SOFOSBUVIR [Suspect]
     Active Substance: LEDIPASVIR\SOFOSBUVIR
     Dosage: UNK
     Route: 065
  4. OMEPRAZOLE. [Suspect]
     Active Substance: OMEPRAZOLE
     Indication: GASTROOESOPHAGEAL REFLUX DISEASE
     Dosage: 1 DF, QD
     Route: 048
     Dates: start: 20150909
  5. LEDIPASVIR/SOFOSBUVIR [Suspect]
     Active Substance: LEDIPASVIR\SOFOSBUVIR
     Indication: CHRONIC HEPATITIS C
     Dosage: 1 DF, QD
     Route: 048
     Dates: start: 20150904, end: 20150924

REACTIONS (4)
  - Hepatitis C [Unknown]
  - Renal failure [Not Recovered/Not Resolved]
  - Drug ineffective [Unknown]
  - Hepatic failure [Not Recovered/Not Resolved]

NARRATIVE: CASE EVENT DATE: 20150904
